FAERS Safety Report 12885979 (Version 1)
Quarter: 2016Q4

REPORT INFORMATION
  Report Type: Spontaneous
  Country: GB (occurrence: GB)
  Receive Date: 20161026
  Receipt Date: 20161026
  Transmission Date: 20170207
  Serious: Yes (Hospitalization)
  Sender: FDA-Public Use
  Company Number: GB-JNJFOC-20161015694

PATIENT
  Age: 63 Year
  Sex: Female
  Weight: 62 kg

DRUGS (8)
  1. FLUCONAZOLE. [Concomitant]
     Active Substance: FLUCONAZOLE
     Dosage: AS A SINGLE DOSE
     Route: 065
     Dates: start: 20160817, end: 20160818
  2. HYPROMELLOSE [Concomitant]
     Active Substance: HYPROMELLOSES
     Dosage: IN THE AFFECTED EYE
     Route: 065
     Dates: start: 20160616
  3. FLEXITOL HEEL [Concomitant]
     Route: 065
     Dates: start: 20140507
  4. CANAGLIFLOZIN [Suspect]
     Active Substance: CANAGLIFLOZIN
     Indication: PRODUCT USED FOR UNKNOWN INDICATION
     Route: 048
     Dates: start: 20160811
  5. GLICLAZIDE [Concomitant]
     Active Substance: GLICLAZIDE
     Route: 065
     Dates: start: 20161006
  6. LIDOCAINE. [Concomitant]
     Active Substance: LIDOCAINE
     Dosage: APPLY 3-4 TIMES A DAY
     Route: 065
     Dates: start: 20160817, end: 20160818
  7. SIMVASTATIN. [Concomitant]
     Active Substance: SIMVASTATIN
     Dosage: NOCTE
     Route: 065
     Dates: start: 20140507
  8. BETAHISTINE [Concomitant]
     Active Substance: BETAHISTINE
     Route: 065
     Dates: start: 20160824, end: 20160929

REACTIONS (4)
  - Abdominal pain lower [Unknown]
  - Vulvovaginal candidiasis [Recovered/Resolved]
  - Dizziness [Unknown]
  - Diabetic ketoacidosis [Unknown]

NARRATIVE: CASE EVENT DATE: 20161006
